FAERS Safety Report 4768902-4 (Version None)
Quarter: 2005Q3

REPORT INFORMATION
  Report Type: 
  Country: None (occurrence: None)
  Receive Date: 20050914
  Receipt Date: 20050901
  Transmission Date: 20060218
  Serious: Yes (Hospitalization)
  Sender: FDA-Public Use
  Company Number: S05-USA-04204-01

PATIENT
  Age: 90 Year
  Sex: Female

DRUGS (4)
  1. NAMENDA [Suspect]
     Indication: DEMENTIA ALZHEIMER'S TYPE
     Dosage: 20 MG QD PO
     Route: 048
     Dates: start: 20040217
  2. ATENOLOL [Concomitant]
  3. NORVASC [Concomitant]
  4. PROTONIX [Concomitant]

REACTIONS (1)
  - ABASIA [None]
